FAERS Safety Report 4636978-0 (Version None)
Quarter: 2005Q2

REPORT INFORMATION
  Report Type: 
  Country: None (occurrence: None)
  Receive Date: 20050415
  Receipt Date: 20050404
  Transmission Date: 20051028
  Serious: Yes (Other)
  Sender: FDA-Public Use
  Company Number: 2004068916

PATIENT
  Age: 51 Year
  Sex: Female
  Weight: 74.8435 kg

DRUGS (1)
  1. NEOSPORIN PLUS PAIN RELIEF MAXIMUM STRENGTH (NEOMYCIN, POLYMYXIN B SUL [Suspect]
     Indication: WOUND
     Dosage: SMALL AMOUNT TID,TOPICAL
     Route: 061
     Dates: start: 20040920, end: 20040920

REACTIONS (9)
  - BURNING SENSATION [None]
  - DERMATITIS CONTACT [None]
  - DRUG HYPERSENSITIVITY [None]
  - EYE BURNS [None]
  - EYE SWELLING [None]
  - OEDEMA PERIPHERAL [None]
  - PAIN [None]
  - SWELLING FACE [None]
  - SYSTEMIC LUPUS ERYTHEMATOSUS [None]
